FAERS Safety Report 8432533-5 (Version None)
Quarter: 2012Q2

REPORT INFORMATION
  Report Type: 
  Country: None (occurrence: None)
  Receive Date: 20120607
  Receipt Date: 20120523
  Transmission Date: 20120825
  Serious: Yes (Death)
  Sender: FDA-Public Use
  Company Number: 2012MA006790

PATIENT
  Age: 70 Year
  Sex: Female

DRUGS (1)
  1. GEMCITABINE HYDROCHLORIDE [Suspect]
     Indication: PANCREATIC CARCINOMA
     Dosage: 500 MG/M**2;IV
     Route: 042
     Dates: start: 20111201, end: 20111208

REACTIONS (3)
  - PANCYTOPENIA [None]
  - NEUTROPENIC SEPSIS [None]
  - AGRANULOCYTOSIS [None]
